FAERS Safety Report 6719878-1 (Version None)
Quarter: 2010Q2

REPORT INFORMATION
  Report Type: 
  Country: None (occurrence: None)
  Receive Date: 20100511
  Receipt Date: 20100510
  Transmission Date: 20101027
  Serious: Yes (Death, Other)
  Sender: FDA-Public Use
  Company Number: PHHY2010AU22628

PATIENT
  Sex: Female

DRUGS (6)
  1. CLOZARIL [Suspect]
     Indication: SCHIZOPHRENIA
     Dosage: UNK
     Dates: start: 19970616
  2. CLOZARIL [Suspect]
     Dosage: 500 MG, DAILY
  3. CLOPINE [Suspect]
     Dosage: UNK
     Dates: start: 20080301, end: 20090401
  4. EFFEXOR [Concomitant]
  5. TEMAZEPAM [Concomitant]
  6. WARFARIN SODIUM [Concomitant]

REACTIONS (5)
  - ANTIPSYCHOTIC DRUG LEVEL INCREASED [None]
  - DRUG TOXICITY [None]
  - HEPATIC STEATOSIS [None]
  - MYOCARDIAL INFARCTION [None]
  - PULMONARY EMBOLISM [None]
